FAERS Safety Report 6863116-6 (Version None)
Quarter: 2010Q3

REPORT INFORMATION
  Report Type: 
  Country: None (occurrence: None)
  Receive Date: 20100719
  Receipt Date: 20100708
  Transmission Date: 20110219
  Serious: Yes (Hospitalization)
  Sender: FDA-Public Use
  Company Number: 015400

PATIENT
  Sex: Male
  Weight: 79 kg

DRUGS (10)
  1. CERTOLIZUMAB PEGOL (CERTOLIZUMAB PEGOL) [Suspect]
     Indication: RHEUMATOID ARTHRITIS
     Dosage: SEE IMAGE
     Route: 058
     Dates: end: 20100315
  2. CERTOLIZUMAB PEGOL (CERTOLIZUMAB PEGOL) [Suspect]
     Indication: RHEUMATOID ARTHRITIS
     Dosage: SEE IMAGE
     Route: 058
     Dates: start: 20091221
  3. PARACETAMOL [Concomitant]
  4. CORTANCYL [Concomitant]
  5. CYCLADOL /000500401/ [Concomitant]
  6. VALSARTAN AND HYDROCHLOROTHIAZIDE [Concomitant]
  7. PERMIXON /00833501/ [Concomitant]
  8. VENTOLIN [Concomitant]
  9. OXEL [Concomitant]
  10. RABEPRAZOLE SODIUM [Concomitant]

REACTIONS (4)
  - CONDITION AGGRAVATED [None]
  - DRUG INEFFECTIVE [None]
  - RASH [None]
  - RHEUMATOID ARTHRITIS [None]
